FAERS Safety Report 10239499 (Version 1)
Quarter: 2014Q2

REPORT INFORMATION
  Report Type: Report from Study
  Country: IN (occurrence: IN)
  Receive Date: 20140616
  Receipt Date: 20140616
  Transmission Date: 20141212
  Serious: Yes (Other)
  Sender: FDA-Public Use
  Company Number: IN-ASTELLAS-2014JP006682

PATIENT
  Sex: 0

DRUGS (4)
  1. TACROLIMUS [Suspect]
     Indication: PRODUCT USED FOR UNKNOWN INDICATION
     Route: 065
  2. BLINDED TACROLIMUS CAPSULES [Suspect]
     Indication: PRODUCT USED FOR UNKNOWN INDICATION
  3. BLINDED TACROLIMUS CAPSULES [Suspect]
     Indication: PRODUCT USED FOR UNKNOWN INDICATION
  4. BLINDED TACROLIMUS CAPSULES [Suspect]
     Indication: PRODUCT USED FOR UNKNOWN INDICATION

REACTIONS (1)
  - Toxicity to various agents [Unknown]
